FAERS Safety Report 8217868-3 (Version None)
Quarter: 2012Q1

REPORT INFORMATION
  Report Type: 
  Country: None (occurrence: None)
  Receive Date: 20120319
  Receipt Date: 20120308
  Transmission Date: 20120608
  Serious: Yes (Hospitalization)
  Sender: FDA-Public Use
  Company Number: US-BAYER-2011-064022

PATIENT
  Age: 24 Year
  Sex: Female
  Weight: 47.166 kg

DRUGS (12)
  1. BENADRYL [Concomitant]
     Dosage: 25 MG, Q4HR AS NEEDED
     Route: 048
     Dates: start: 20090619
  2. DEMEROL [Concomitant]
     Dosage: UNK
     Route: 042
     Dates: start: 20090618
  3. PERCOCET [Concomitant]
     Dosage: 5-325 MG, 1 EVERY 6 HOURS AS NEEDED
     Route: 048
     Dates: start: 20090620
  4. YAZ [Suspect]
     Indication: CONTRACEPTION
     Dosage: UNK
     Dates: start: 20090401, end: 20090601
  5. DILAUDID [Concomitant]
     Dosage: UNK
     Route: 042
     Dates: start: 20090619
  6. MORPHINE [Concomitant]
     Dosage: 4 MG, AS DIRECTED
     Route: 042
     Dates: start: 20090616
  7. ZOFRAN [Concomitant]
     Dosage: 4 MG, UNK
     Route: 042
     Dates: start: 20090616
  8. TYLENOL [Concomitant]
     Dosage: UNK
     Route: 048
     Dates: start: 20090616
  9. POTASSIUM [Concomitant]
     Dosage: 20 MEQ, UNK
     Route: 042
     Dates: start: 20090617
  10. AMPICILLIN [Concomitant]
     Dosage: 3 G, QID
     Route: 042
     Dates: start: 20090619
  11. LEVAQUIN [Concomitant]
     Dosage: 500 MG, UNK
     Route: 042
     Dates: start: 20090616
  12. ONE A DAY [B12,D2,B3,B6,RETINOL,B2,NA+ ASCORB,B1 MONONITR] [Concomitant]
     Dosage: UNK
     Route: 048
     Dates: start: 20090623

REACTIONS (9)
  - INJURY [None]
  - BILE DUCT STONE [None]
  - GALLBLADDER DISORDER [None]
  - PANCREATITIS [None]
  - PAIN [None]
  - ANXIETY [None]
  - EMOTIONAL DISTRESS [None]
  - CHOLECYSTITIS CHRONIC [None]
  - DEPRESSION [None]
